FAERS Safety Report 9044981 (Version 1)
Quarter: 2013Q1

REPORT INFORMATION
  Report Type: Spontaneous
  Country: US (occurrence: US)
  Receive Date: 20130130
  Receipt Date: 20130130
  Transmission Date: 20140127
  Serious: No
  Sender: FDA-Public Use
  Company Number: US-ASTRAZENECA-2013SE02076

PATIENT
  Age: 64 Year
  Sex: Female
  Weight: 77.1 kg

DRUGS (4)
  1. NEXIUM [Suspect]
     Indication: GASTRIC DISORDER
     Route: 048
     Dates: start: 2003
  2. TOPROL XL [Suspect]
     Indication: HYPERTENSION
     Route: 048
     Dates: start: 1995
  3. INSPRA [Concomitant]
     Indication: RENAL HYPERTENSION
     Route: 065
  4. PREVACID [Concomitant]

REACTIONS (5)
  - Coeliac disease [Unknown]
  - Renal hypertension [Unknown]
  - Frequent bowel movements [Not Recovered/Not Resolved]
  - Abdominal discomfort [Not Recovered/Not Resolved]
  - Off label use [Unknown]
